FAERS Safety Report 10071511 (Version 2)
Quarter: 2014Q2

REPORT INFORMATION
  Report Type: Spontaneous
  Country: JP (occurrence: JP)
  Receive Date: 20140410
  Receipt Date: 20140425
  Transmission Date: 20141212
  Serious: Yes (Hospitalization)
  Sender: FDA-Public Use
  Company Number: JP-009507513-1404JPN003943

PATIENT
  Age: 54 Year
  Sex: Female
  Weight: 59 kg

DRUGS (18)
  1. FOSAMAC TABLETS 35MG [Suspect]
     Indication: PROPHYLAXIS
     Dosage: 35 MG, QW
     Route: 048
     Dates: start: 20130716, end: 20130820
  2. SINGULAIR TABLETS 5MG [Suspect]
     Indication: ASTHMA
     Dosage: UNK
     Route: 048
     Dates: start: 20120522, end: 20120711
  3. SINGULAIR TABLETS 5MG [Suspect]
     Dosage: UNK
     Route: 048
     Dates: end: 20130326
  4. SYMBICORT [Suspect]
     Indication: ASTHMA
     Dosage: 1 DF, QID
     Route: 055
     Dates: start: 20120522
  5. SYMBICORT [Suspect]
     Dosage: 8 TIMES/DAY
     Route: 055
     Dates: end: 20120711
  6. SYMBICORT [Suspect]
     Dosage: UNK
     Route: 055
     Dates: start: 20120724
  7. BAKTAR [Suspect]
     Indication: PROPHYLAXIS
     Dosage: 1 DF, QD
     Route: 048
     Dates: start: 20130716, end: 20130820
  8. BAKUMONDO-TO [Suspect]
     Indication: ANTITUSSIVE THERAPY
     Dosage: 3 G, TID
     Route: 048
     Dates: start: 20130716, end: 20130820
  9. PREDONINE [Concomitant]
     Indication: ASTHMA
     Dosage: 20 MG, QD
     Route: 048
     Dates: start: 20130521, end: 20130603
  10. PREDONINE [Concomitant]
     Dosage: 15 MG, QD
     Route: 048
     Dates: start: 20130604, end: 20130617
  11. PREDONINE [Concomitant]
     Dosage: 10 MG, QD
     Route: 048
     Dates: start: 20130618, end: 20130708
  12. PREDONINE [Concomitant]
     Dosage: 20 MG, QD
     Route: 048
     Dates: start: 20130709, end: 20130729
  13. PREDONINE [Concomitant]
     Dosage: 15 MG, QD
     Route: 048
     Dates: start: 20130730, end: 20130819
  14. PREDONINE [Concomitant]
     Dosage: 30 MG, QD
     Route: 048
     Dates: start: 20130820, end: 20130826
  15. PREDONINE [Concomitant]
     Dosage: 15 MG, QD
     Route: 048
     Dates: start: 20130827
  16. TAKEPRON [Concomitant]
     Indication: PROPHYLAXIS
     Dosage: 15 MG, QD
     Route: 048
     Dates: start: 20130528, end: 20130820
  17. SOL MELCORT [Concomitant]
     Dosage: 125 MG, QD
     Route: 041
     Dates: start: 20130521, end: 20130521
  18. MUCODYNE [Concomitant]
     Dosage: UNK
     Route: 048
     Dates: end: 20130820

REACTIONS (2)
  - Drug eruption [Recovered/Resolved]
  - Muscle spasms [Recovering/Resolving]
